FAERS Safety Report 24731299 (Version 2)
Quarter: 2025Q3

REPORT INFORMATION
  Report Type: Report from Study
  Country: US (occurrence: US)
  Receive Date: 20241213
  Receipt Date: 20250803
  Transmission Date: 20251020
  Serious: Yes (Hospitalization, Other)
  Sender: ALEXION PHARMACEUTICALS
  Company Number: US-AstraZeneca-CH-00763424A

PATIENT
  Sex: Female
  Weight: 69.7 kg

DRUGS (1)
  1. OLAPARIB [Suspect]
     Active Substance: OLAPARIB
     Indication: Benign ovarian tumour
     Dosage: 150 MILLIGRAM, BID
     Dates: start: 20230906

REACTIONS (2)
  - Spinal fracture [Unknown]
  - Infection [Unknown]
